FAERS Safety Report 9441020 (Version 2)
Quarter: 2013Q3

REPORT INFORMATION
  Report Type: Spontaneous
  Country: US (occurrence: None)
  Receive Date: 20130801
  Receipt Date: 20130906
  Transmission Date: 20140515
  Serious: Yes (Other)
  Sender: FDA-Public Use
  Company Number: ACO_37611_2013

PATIENT
  Age: 41 Year
  Sex: Female

DRUGS (13)
  1. AMPYRA [Suspect]
     Indication: PRODUCT USED FOR UNKNOWN INDICATION
     Route: 048
  2. MAGNESIUM (MAGNESIUM) [Concomitant]
  3. CALCIUM (CALCIUM) [Concomitant]
  4. ATARAX (HYDROXYZINE HYDROCHLORIDE) [Concomitant]
  5. XOLAIR (OMALIZUMAB) [Concomitant]
  6. TECFIDERA [Suspect]
     Route: 048
  7. LYRICA (PREGABALIN) [Concomitant]
  8. IMITREX (SUMATRIPTAN SUCCINATE) [Concomitant]
  9. EFFEXOR (VENLAFAXINE HYDROCHLORIDE) UNKNOWN [Concomitant]
  10. AMBIEN (ZOLPIDEM TARTRATE) [Concomitant]
  11. VITAMIN D (ERGOCALCIFEROL) [Concomitant]
  12. VITAMIN B 12 (CYANOCOBALAMIN) [Concomitant]
  13. KLONOPIN (CLONAZEPAM) (TABLETS) [Concomitant]

REACTIONS (4)
  - Stress [None]
  - Fatigue [None]
  - Urticaria [None]
  - Autoimmune thyroiditis [None]
